FAERS Safety Report 8436141-1 (Version None)
Quarter: 2012Q2

REPORT INFORMATION
  Report Type: 
  Country: None (occurrence: None)
  Receive Date: 20120614
  Receipt Date: 20120608
  Transmission Date: 20120825
  Serious: Yes (Hospitalization)
  Sender: FDA-Public Use
  Company Number: FR-ROCHE-1077052

PATIENT
  Age: 49 Year
  Sex: Male

DRUGS (8)
  1. COPEGUS [Suspect]
     Dates: start: 20120502
  2. PEGASYS [Suspect]
     Indication: HEPATITIS C
     Route: 058
     Dates: start: 20120215, end: 20120423
  3. PEGASYS [Suspect]
     Dosage: REDUCED DOSE
     Dates: start: 20120502
  4. PROPRANOLOL [Concomitant]
     Indication: VARICES OESOPHAGEAL
     Route: 048
     Dates: start: 20120215
  5. NEXIUM [Concomitant]
     Indication: GASTRIC ULCER
     Route: 048
  6. VICTRELIS [Suspect]
     Dates: start: 20120502
  7. COPEGUS [Suspect]
     Indication: HEPATITIS C
     Route: 048
     Dates: start: 20120215, end: 20120423
  8. VICTRELIS [Suspect]
     Indication: HEPATITIS C
     Route: 048
     Dates: start: 20120307, end: 20120423

REACTIONS (5)
  - AGRANULOCYTOSIS [None]
  - VOMITING [None]
  - PYREXIA [None]
  - DIARRHOEA [None]
  - ANAEMIA [None]
